FAERS Safety Report 7106166-7 (Version None)
Quarter: 2010Q4

REPORT INFORMATION
  Report Type: 
  Country: None (occurrence: None)
  Receive Date: 20101116
  Receipt Date: 20101104
  Transmission Date: 20110411
  Serious: Yes (Other)
  Sender: FDA-Public Use
  Company Number: GXKR2010JP12490

PATIENT
  Age: 50 Year
  Sex: Male

DRUGS (6)
  1. FLUOROURACIL [Suspect]
     Indication: COLON CANCER
     Dosage: 400 MG/M2, UNK
     Route: 065
  2. FLUOROURACIL [Suspect]
     Dosage: 2400 MG/M2, CONT
  3. FLUOROURACIL [Suspect]
     Dosage: 320 MG/M2, (20% DOSE REDUCTION)
     Route: 065
  4. FLUOROURACIL [Suspect]
     Dosage: 1920 MG/M2, CONT (20% DOSE REDUCTION)
  5. OXALIPLATIN [Concomitant]
     Indication: COLON CANCER
     Route: 065
  6. FOLINIC ACID [Concomitant]
     Indication: COLON CANCER

REACTIONS (5)
  - ALTERED STATE OF CONSCIOUSNESS [None]
  - HYPERAMMONAEMIA [None]
  - HYPERAMMONAEMIC ENCEPHALOPATHY [None]
  - NAUSEA [None]
  - VOMITING [None]
